FAERS Safety Report 5234848-0 (Version None)
Quarter: 2007Q1

REPORT INFORMATION
  Report Type: 
  Country: None (occurrence: None)
  Receive Date: 20070209
  Receipt Date: 20070130
  Transmission Date: 20070707
  Serious: Yes (Other)
  Sender: FDA-Public Use
  Company Number: IL-PFIZER INC-2007007517

PATIENT
  Sex: Female

DRUGS (1)
  1. PROVERA [Suspect]
     Route: 048

REACTIONS (1)
  - ABORTION MISSED [None]
